FAERS Safety Report 11723197 (Version 1)
Quarter: 2015Q4

REPORT INFORMATION
  Report Type: Spontaneous
  Country: BR (occurrence: BR)
  Receive Date: 20151111
  Receipt Date: 20151111
  Transmission Date: 20160304
  Serious: Yes (Hospitalization)
  Sender: FDA-Public Use
  Company Number: BR-TORRENT-00003192

PATIENT
  Age: 79 Year
  Sex: Female
  Weight: 53 kg

DRUGS (7)
  1. ZETRON [Concomitant]
     Indication: DEPRESSION
     Dosage: ONCE DAILY/ ORAL
     Route: 048
     Dates: start: 2014
  2. GLIFAGE [Concomitant]
     Active Substance: METFORMIN HYDROCHLORIDE
     Indication: DIABETES MELLITUS
     Dosage: GLIFAGE 500 MG TWICE DAILY/ ORAL
     Route: 048
     Dates: start: 2014
  3. RESPIDON [Suspect]
     Active Substance: RISPERIDONE
     Indication: SEDATIVE THERAPY
     Dosage: ONCE DAILY/ ORAL
     Route: 048
     Dates: start: 201507
  4. AAS [Concomitant]
     Active Substance: ASPIRIN
     Indication: ANTIPLATELET THERAPY
     Dosage: ONCE DAILY/ ORAL
     Route: 048
     Dates: start: 2012
  5. TEGRETOL [Concomitant]
     Active Substance: CARBAMAZEPINE
     Indication: EPILEPSY
     Dosage: DOSE NUMBER IS UNKNOWN/ NUMBER OF UNITS IN INTERVAL IS UNKNOWN/ ORAL
     Route: 048
     Dates: start: 2011, end: 201510
  6. LAMITOR [Suspect]
     Active Substance: LAMOTRIGINE
     Indication: EPILEPSY
     Dosage: LAMITOR 100 MG THREE TIMES DAILY/ ORAL
     Route: 048
     Dates: start: 201509
  7. ANCORON [Concomitant]
     Active Substance: AMIODARONE HYDROCHLORIDE
     Indication: ARRHYTHMIA
     Dosage: ONCE DAILY/ ORAL
     Route: 048
     Dates: start: 201505

REACTIONS (8)
  - Dizziness [Recovered/Resolved]
  - Aggression [Recovered/Resolved]
  - Vomiting [Not Recovered/Not Resolved]
  - Depressive symptom [Not Recovered/Not Resolved]
  - Viral infection [Recovered/Resolved]
  - Off label use [Not Recovered/Not Resolved]
  - Urinary tract infection [Recovered/Resolved]
  - Hyponatraemia [Not Recovered/Not Resolved]

NARRATIVE: CASE EVENT DATE: 201507
